FAERS Safety Report 11671808 (Version 1)
Quarter: 2015Q4

REPORT INFORMATION
  Report Type: Spontaneous
  Country: IT (occurrence: None)
  Receive Date: 20151026
  Receipt Date: 20151026
  Transmission Date: 20160304
  Serious: Yes (Hospitalization)
  Sender: FDA-Public Use
  Company Number: 2015000044

PATIENT
  Age: 69 Year
  Sex: Female

DRUGS (3)
  1. LENDORMIN (BROTIZOLAM) TABLET [Concomitant]
     Active Substance: BROTIZOLAM
  2. TRAZODONE [Suspect]
     Active Substance: TRAZODONE HYDROCHLORIDE
     Indication: DRUG ABUSE
     Dosage: 16 UNITS DOSAGE OF TOTALLY
     Route: 048
     Dates: start: 20150716, end: 20150716
  3. NORVASC [Concomitant]
     Active Substance: AMLODIPINE BESYLATE

REACTIONS (3)
  - Overdose [None]
  - Drug abuse [None]
  - Somnolence [None]

NARRATIVE: CASE EVENT DATE: 20150716
